FAERS Safety Report 17546589 (Version 1)
Quarter: 2020Q1

REPORT INFORMATION
  Report Type: Spontaneous
  Country: US (occurrence: US)
  Receive Date: 20200309
  Receipt Date: 20200309
  Transmission Date: 20200409
  Serious: Yes (Other)
  Sender: FDA-Public Use
  Company Number: None

PATIENT
  Age: 69 Year
  Sex: Female

DRUGS (1)
  1. IBRANCE [Suspect]
     Active Substance: PALBOCICLIB
     Dosage: ?          OTHER DOSE:IBRANCE 75MG;OTHER FREQUENCY:ONCE CAP DAILY;OTHER ROUTE:21?
     Dates: start: 20200221

REACTIONS (3)
  - Rash [None]
  - Throat irritation [None]
  - Eye swelling [None]

NARRATIVE: CASE EVENT DATE: 20200306
